FAERS Safety Report 5342799-6 (Version None)
Quarter: 2007Q2

REPORT INFORMATION
  Report Type: 
  Country: None (occurrence: None)
  Receive Date: 20070601
  Receipt Date: 20070515
  Transmission Date: 20071010
  Serious: Yes (Disabling, Other)
  Sender: FDA-Public Use
  Company Number: US-PFIZER INC-2007042444

PATIENT
  Sex: Male

DRUGS (2)
  1. BEXTRA [Suspect]
     Indication: EPICONDYLITIS
     Dosage: DAILY DOSE:20MG
  2. NEXIUM [Concomitant]

REACTIONS (5)
  - ARTHROSCOPY [None]
  - CHEST PAIN [None]
  - OSTECTOMY [None]
  - OSTEOARTHRITIS [None]
  - SPINAL OSTEOARTHRITIS [None]
